FAERS Safety Report 12158316 (Version 1)
Quarter: 2016Q1

REPORT INFORMATION
  Report Type: Spontaneous
  Country: US (occurrence: None)
  Receive Date: 20160307
  Receipt Date: 20160307
  Transmission Date: 20160526
  Serious: No
  Sender: FDA-Public Use
  Company Number: None

PATIENT
  Age: 11 Year
  Sex: Female
  Weight: 30.84 kg

DRUGS (2)
  1. AMOXICILLIN FOR ORAL SUSPEN USP 400MG/5ML TEVA [Suspect]
     Active Substance: AMOXICILLIN
     Indication: TONSILLITIS STREPTOCOCCAL
     Dosage: 2 TSPFUL TWICE DAILY X 10 DAYS TWICE DAILY TAKEN BY MOUTH
     Route: 048
     Dates: start: 20160224, end: 20160302
  2. INTERNATIONAL VITAMIN CORPORATION DAILY MULTIVITAMIN/MULTIMINERAL [Concomitant]

REACTIONS (3)
  - Drug hypersensitivity [None]
  - Rash generalised [None]
  - Pruritus [None]

NARRATIVE: CASE EVENT DATE: 20160302
